FAERS Safety Report 6277795-8 (Version None)
Quarter: 2009Q3

REPORT INFORMATION
  Report Type: 
  Country: None (occurrence: None)
  Receive Date: 20090722
  Receipt Date: 20090710
  Transmission Date: 20100115
  Serious: Yes (Other)
  Sender: FDA-Public Use
  Company Number: AU-ELI_LILLY_AND_COMPANY-AU200907001902

PATIENT
  Sex: Male

DRUGS (1)
  1. EXENATIDE [Suspect]

REACTIONS (1)
  - MALIGNANT PERITONEAL NEOPLASM [None]
